FAERS Safety Report 5176177-X (Version None)
Quarter: 2006Q4

REPORT INFORMATION
  Report Type: 
  Country: None (occurrence: None)
  Receive Date: 20061215
  Receipt Date: 20060623
  Transmission Date: 20070319
  Serious: No
  Sender: FDA-Public Use
  Company Number: US-AMGEN-KDL184196

PATIENT
  Sex: Male

DRUGS (1)
  1. ENBREL [Suspect]
     Indication: ANKYLOSING SPONDYLITIS
     Route: 058
     Dates: start: 19981201

REACTIONS (6)
  - ANKYLOSING SPONDYLITIS [None]
  - CONDITION AGGRAVATED [None]
  - CYSTITIS [None]
  - PHARYNGITIS [None]
  - POST PROCEDURAL HAEMORRHAGE [None]
  - SKIN PAPILLOMA [None]
